FAERS Safety Report 9991930 (Version 2)
Quarter: 2014Q2

REPORT INFORMATION
  Report Type: Spontaneous
  Country: US (occurrence: US)
  Receive Date: 20140310
  Receipt Date: 20140610
  Transmission Date: 20141212
  Serious: No
  Sender: FDA-Public Use
  Company Number: US-VIIV HEALTHCARE LIMITED-A1059271A

PATIENT
  Age: 26 Year
  Sex: Male

DRUGS (5)
  1. TIVICAY [Suspect]
     Indication: HIV INFECTION
     Dosage: 50MG PER DAY
     Route: 048
     Dates: start: 201309
  2. EPZICOM [Concomitant]
     Indication: HIV INFECTION
     Route: 048
     Dates: start: 201307
  3. SEPTRA DS [Concomitant]
     Indication: DIZZINESS
     Route: 048
  4. VIAGRA [Concomitant]
     Indication: ERECTILE DYSFUNCTION
     Route: 048
  5. ANTIDEPRESSANT [Concomitant]
     Indication: DEPRESSION
     Dosage: 20MG PER DAY
     Route: 048

REACTIONS (2)
  - Abdominal discomfort [Recovering/Resolving]
  - Diarrhoea [Recovering/Resolving]
